FAERS Safety Report 17220559 (Version 3)
Quarter: 2020Q1

REPORT INFORMATION
  Report Type: Spontaneous
  Country: ES (occurrence: ES)
  Receive Date: 20191231
  Receipt Date: 20200129
  Transmission Date: 20200409
  Serious: Yes (Other)
  Sender: FDA-Public Use
  Company Number: ES-MYLANLABS-2019M1132018

PATIENT

DRUGS (9)
  1. TENOFOVIR DISOPROXIL [Interacting]
     Active Substance: TENOFOVIR DISOPROXIL
     Indication: HIV INFECTION
  2. LOPINAVIR [Interacting]
     Active Substance: LOPINAVIR
     Indication: HIV INFECTION
     Dosage: UNK
     Route: 065
     Dates: start: 2008
  3. EMTRICITABINE [Interacting]
     Active Substance: EMTRICITABINE
     Indication: ANTIRETROVIRAL THERAPY
     Dosage: UNK
     Route: 065
  4. RITONAVIR. [Interacting]
     Active Substance: RITONAVIR
     Indication: HIV INFECTION
     Dosage: UNK
     Route: 065
     Dates: start: 2008
  5. EMTRICITABINE [Interacting]
     Active Substance: EMTRICITABINE
     Indication: HIV INFECTION
     Dosage: UNK
     Route: 065
     Dates: start: 2008
  6. TENOFOVIR DISOPROXIL [Suspect]
     Active Substance: TENOFOVIR DISOPROXIL
     Indication: ANTIRETROVIRAL THERAPY
     Dosage: UNK
     Route: 065
     Dates: start: 2008
  7. STOCRIN [Interacting]
     Active Substance: EFAVIRENZ
     Indication: ANTIRETROVIRAL THERAPY
     Dosage: UNK
     Route: 048
  8. EFAVIRENZ. [Interacting]
     Active Substance: EFAVIRENZ
     Indication: ANTIRETROVIRAL THERAPY
  9. EFAVIRENZ. [Interacting]
     Active Substance: EFAVIRENZ
     Indication: HIV INFECTION
     Dosage: UNK
     Route: 048
     Dates: start: 2008

REACTIONS (4)
  - Neurotoxicity [Recovered/Resolved]
  - Hepatotoxicity [Recovered/Resolved]
  - Disseminated tuberculosis [Unknown]
  - Drug interaction [Unknown]
